FAERS Safety Report 8291032 (Version 7)
Quarter: 2012Q4

REPORT INFORMATION
  Report Type: 
  Country: US (occurrence: US)
  Receive Date: 20111122
  Receipt Date: 20121109
  Transmission Date: 20130627
  Serious: Yes (Other)
  Sender: FDA-Public Use
  Company Number: PHHY2011US57783

PATIENT
  Age: 47 Year
  Sex: Female
  Weight: 52.15 kg

DRUGS (10)
  1. GILENYA [Suspect]
     Indication: RELAPSING-REMITTING MULTIPLE SCLEROSIS
     Dosage: 0.5 mg
     Route: 048
     Dates: start: 20110128
  2. GILENYA [Suspect]
     Dosage: 0.5 mg, QD
     Route: 048
     Dates: start: 20110215, end: 20120911
  3. GILENYA [Suspect]
     Dosage: 0.5 mg, QD
     Route: 048
     Dates: start: 201111
  4. GILENYA [Suspect]
     Dosage: 0.5 mg, QD
     Route: 048
     Dates: start: 20111228, end: 20120312
  5. GILENYA [Suspect]
     Dosage: 0.5 mg, QD
     Route: 048
  6. METHYLPREDNISOLONE [Concomitant]
  7. PREDNISONE [Concomitant]
  8. VIVELLE-DOT [Concomitant]
  9. PROMETRIUM [Concomitant]
  10. CRESTOR [Concomitant]

REACTIONS (6)
  - Jugular vein distension [Unknown]
  - Chest pain [Unknown]
  - Constipation [Not Recovered/Not Resolved]
  - Burning sensation [Unknown]
  - Asthenia [Unknown]
  - Headache [Not Recovered/Not Resolved]
